FAERS Safety Report 4714629-4 (Version None)
Quarter: 2005Q3

REPORT INFORMATION
  Report Type: 
  Country: None (occurrence: None)
  Receive Date: 20050715
  Receipt Date: 20050513
  Transmission Date: 20060218
  Serious: Yes (Hospitalization)
  Sender: FDA-Public Use
  Company Number: FR-JNJFOC-20050503487

PATIENT
  Age: 32 Year
  Sex: Female

DRUGS (3)
  1. PEVARYL [Suspect]
     Indication: VAGINAL CANDIDIASIS
     Route: 061
     Dates: start: 20050324, end: 20050326
  2. GYNOMYK [Concomitant]
     Route: 065
  3. NUREFLEX [Concomitant]
     Indication: HEADACHE
     Route: 065

REACTIONS (1)
  - THROMBOCYTOPENIC PURPURA [None]
